FAERS Safety Report 6241350-6 (Version None)
Quarter: 2009Q2

REPORT INFORMATION
  Report Type: 
  Country: None (occurrence: None)
  Receive Date: 20090619
  Receipt Date: 20090619
  Transmission Date: 20091009
  Serious: Yes (Other)
  Sender: FDA-Public Use
  Company Number: None

PATIENT
  Age: 48 Year
  Sex: Male
  Weight: 79.3795 kg

DRUGS (5)
  1. COLD EEZE LOZENGES COLD EEZE [Suspect]
     Indication: NASOPHARYNGITIS
     Dosage: 1 LOZENGE EVERY 2-4 HOURS AS NEEDED PO
     Route: 048
     Dates: start: 20090101, end: 20090430
  2. WALGREENS COLD FORMULA LOZENGES WALGREENS [Suspect]
     Indication: NASOPHARYNGITIS
     Dosage: 1 LOZENGES EVER 2-4 HOURS AS NEEDED PO
     Route: 048
     Dates: start: 20090101, end: 20090430
  3. CHLOR-TRIMETON [Concomitant]
  4. TRICOR [Concomitant]
  5. ATENOLOL [Concomitant]

REACTIONS (2)
  - DYSGEUSIA [None]
  - PRODUCT SUBSTITUTION ISSUE [None]
